FAERS Safety Report 17242258 (Version 1)
Quarter: 2020Q1

REPORT INFORMATION
  Report Type: Spontaneous
  Country: US (occurrence: US)
  Receive Date: 20200107
  Receipt Date: 20200107
  Transmission Date: 20200409
  Serious: Yes (Other)
  Sender: FDA-Public Use
  Company Number: US-SA-2020SA002467

PATIENT
  Age: 45 Year
  Sex: Male

DRUGS (6)
  1. SECUKINUMAB. [Suspect]
     Active Substance: SECUKINUMAB
     Indication: DERMATITIS ATOPIC
  2. DUPIXENT [Suspect]
     Active Substance: DUPILUMAB
     Indication: DERMATITIS ATOPIC
  3. APREMILAST [Suspect]
     Active Substance: APREMILAST
     Indication: DERMATITIS ATOPIC
  4. DEXAMETHASONE SALT NOT SPECIFIED [Suspect]
     Active Substance: DEXAMETHASONE
     Indication: ACOUSTIC NEUROMA
     Dosage: LOW DOSE TAPERING
  5. CORTICOSTEROID NOS [Suspect]
     Active Substance: CORTICOSTEROID NOS
     Indication: DERMATITIS ATOPIC
  6. METHOTREXATE. [Suspect]
     Active Substance: METHOTREXATE
     Indication: DERMATITIS ATOPIC

REACTIONS (5)
  - Cough [Recovering/Resolving]
  - Treatment failure [Unknown]
  - Acute respiratory failure [Recovering/Resolving]
  - Pneumocystis jirovecii infection [Recovering/Resolving]
  - Hypoxia [Recovering/Resolving]
